FAERS Safety Report 10196765 (Version 1)
Quarter: 2014Q2

REPORT INFORMATION
  Report Type: Spontaneous
  Country: GB (occurrence: None)
  Receive Date: 20140522
  Receipt Date: 20140522
  Transmission Date: 20141212
  Serious: Yes (Hospitalization)
  Sender: FDA-Public Use
  Company Number: 2014-001427

PATIENT
  Age: 85 Year
  Sex: Male

DRUGS (13)
  1. SARAFEM (FLUOXETINE HYDROCHLORIDE) TABLET, 20MG [Suspect]
     Route: 048
     Dates: end: 20140428
  2. APRACLONIDINE (APRACLONIDINE) [Concomitant]
  3. ASPIRIN (ACETYLSALICYLIC ACID) [Concomitant]
  4. CALCICHEW D3 (CALCIUM CARBONATE, COLECALCIFEROL) [Concomitant]
  5. CARBOMER (CARBOMER) [Concomitant]
  6. LATANOPROST (LATANOPROST) [Concomitant]
  7. OMEPRAZOLE (OMEPRAZOLE) [Concomitant]
  8. PARACETAMOL (PARACETAMOL) [Concomitant]
  9. RIMEXOLONE (RIMEXOLONE) [Concomitant]
  10. SALBUTAMOL (SALBUTAMOL) [Concomitant]
  11. SERETIDE (FLUTICASONE PROPIONATE, SALMETEROL XINAFOATE) [Concomitant]
  12. TEMAZEPAM (TEMAZEPAM) [Concomitant]
  13. TIOTROPIUM (TIOTROPIUM) [Concomitant]

REACTIONS (7)
  - Sinus bradycardia [None]
  - Urinary retention [None]
  - Constipation [None]
  - Dry mouth [None]
  - Dyspnoea [None]
  - Tenderness [None]
  - Somnolence [None]
